FAERS Safety Report 8336046-0 (Version None)
Quarter: 2012Q2

REPORT INFORMATION
  Report Type: 
  Country: None (occurrence: None)
  Receive Date: 20120501
  Receipt Date: 20120501
  Transmission Date: 20120825
  Serious: Yes (Hospitalization)
  Sender: FDA-Public Use
  Company Number: None

PATIENT
  Age: 81 Year
  Sex: Female
  Weight: 86.6 kg

DRUGS (8)
  1. VIT C [Concomitant]
  2. CA [Concomitant]
  3. WARFARIN SODIUM [Suspect]
     Indication: ATRIAL FIBRILLATION
     Dosage: 5MG / 7.5MG  STWTHS / MF  PO/PO  CHRONIC
     Route: 048
  4. ASPIRIN [Suspect]
     Indication: ATRIAL FIBRILLATION
     Dosage: 81MG DAILY PO CHRONIC
     Route: 048
  5. M.V.I. [Concomitant]
  6. SELENIUM [Concomitant]
  7. ACCUPRIL [Concomitant]
  8. METOPROLOL TARTRATE [Concomitant]

REACTIONS (4)
  - HAEMOGLOBIN DECREASED [None]
  - HAEMATOCRIT DECREASED [None]
  - GASTROINTESTINAL ARTERIOVENOUS MALFORMATION [None]
  - LOWER GASTROINTESTINAL HAEMORRHAGE [None]
